FAERS Safety Report 12607979 (Version 1)
Quarter: 2016Q3

REPORT INFORMATION
  Report Type: Report from Study
  Country: BR (occurrence: BR)
  Receive Date: 20160729
  Receipt Date: 20160729
  Transmission Date: 20161109
  Serious: Yes (Other)
  Sender: FDA-Public Use
  Company Number: PHHY2016BR101527

PATIENT
  Sex: Male
  Weight: 81 kg

DRUGS (1)
  1. FORASEQ [Suspect]
     Active Substance: BUDESONIDE\FORMOTEROL FUMARATE
     Indication: LUNG DISORDER
     Dosage: 2 DF (BUDESONIDE 400 MCG, FORMOTEROL FUMARATE 12 MCG) (2 CAPSULES IN MORNING AND 2 AT NIGHT), BID
     Route: 055
     Dates: start: 20160329

REACTIONS (5)
  - Concomitant disease aggravated [Unknown]
  - Product use issue [Unknown]
  - Accident [Unknown]
  - Cardiac disorder [Unknown]
  - Wrist fracture [Unknown]
